FAERS Safety Report 13055355 (Version 1)
Quarter: 2016Q4

REPORT INFORMATION
  Report Type: Spontaneous
  Country: US (occurrence: US)
  Receive Date: 20161222
  Receipt Date: 20161222
  Transmission Date: 20170207
  Serious: Yes (Hospitalization, Other)
  Sender: FDA-Public Use
  Company Number: US-APOPHARMA USA, INC.-2016AP015837

PATIENT
  Age: 53 Year
  Sex: Male

DRUGS (4)
  1. ALKERAN [Suspect]
     Active Substance: MELPHALAN
     Indication: PLASMA CELL MYELOMA
     Dosage: 380 MG, SINGLE
     Route: 042
     Dates: start: 20111011, end: 20111011
  2. VELCADE [Concomitant]
     Active Substance: BORTEZOMIB
     Indication: PLASMA CELL MYELOMA
     Dosage: 1.3 MG/M2, OTHER
     Route: 042
     Dates: start: 20110328, end: 20110901
  3. ALKERAN [Suspect]
     Active Substance: MELPHALAN
     Indication: TRANSPLANT
  4. DEXAMETHASONE. [Concomitant]
     Active Substance: DEXAMETHASONE
     Indication: PLASMA CELL MYELOMA
     Dosage: 20 MG, OTHER
     Route: 042
     Dates: start: 20110328, end: 20110901

REACTIONS (3)
  - Clostridium difficile colitis [Recovered/Resolved]
  - Rash erythematous [Recovered/Resolved]
  - Febrile neutropenia [Recovered/Resolved]

NARRATIVE: CASE EVENT DATE: 20111021
